FAERS Safety Report 13967649 (Version 1)
Quarter: 2017Q3

REPORT INFORMATION
  Report Type: Spontaneous
  Country: US (occurrence: US)
  Receive Date: 20170914
  Receipt Date: 20170914
  Transmission Date: 20171128
  Serious: Yes (Death, Life-Threatening, Hospitalization, Other)
  Sender: FDA-Public Use
  Company Number: US-SUN PHARMACEUTICAL INDUSTRIES LTD-2017US-149829

PATIENT
  Age: 72 Year
  Sex: Male

DRUGS (3)
  1. CILOSTAZOL. [Interacting]
     Active Substance: CILOSTAZOL
     Indication: PRODUCT USED FOR UNKNOWN INDICATION
     Dosage: UNK
     Route: 048
  2. TAMSULOSIN [Suspect]
     Active Substance: TAMSULOSIN
     Indication: PRODUCT USED FOR UNKNOWN INDICATION
     Route: 048
  3. METFORMIN [Concomitant]
     Active Substance: METFORMIN HYDROCHLORIDE
     Indication: PRODUCT USED FOR UNKNOWN INDICATION
     Dosage: UNK
     Route: 065

REACTIONS (12)
  - Intentional overdose [Fatal]
  - Headache [Unknown]
  - Diarrhoea [Unknown]
  - Neck pain [Unknown]
  - Hypotension [Fatal]
  - Abnormal behaviour [Unknown]
  - Mental impairment [Unknown]
  - Vomiting [Unknown]
  - Bradycardia [Unknown]
  - Drug interaction [Fatal]
  - Agitation [Unknown]
  - Confusional state [Unknown]
